FAERS Safety Report 5205374-X (Version None)
Quarter: 2007Q1

REPORT INFORMATION
  Report Type: 
  Country: None (occurrence: None)
  Receive Date: 20070108
  Receipt Date: 20061221
  Transmission Date: 20070707
  Serious: Yes (Other)
  Sender: FDA-Public Use
  Company Number: 2006BI018691

PATIENT
  Age: 55 Year
  Sex: Male
  Weight: 70.3075 kg

DRUGS (2)
  1. AVONEX [Suspect]
     Indication: DRUG USE FOR UNKNOWN INDICATION
     Dosage: IM
     Route: 030
     Dates: start: 20010517
  2. AVONEX [Suspect]
     Indication: DRUG USE FOR UNKNOWN INDICATION
     Dosage: IM
     Route: 030
     Dates: end: 20050101

REACTIONS (2)
  - COGNITIVE DISORDER [None]
  - PETIT MAL EPILEPSY [None]
